FAERS Safety Report 6133040-5 (Version None)
Quarter: 2009Q1

REPORT INFORMATION
  Report Type: 
  Country: None (occurrence: None)
  Receive Date: 20090326
  Receipt Date: 20090317
  Transmission Date: 20090719
  Serious: Yes (Other)
  Sender: FDA-Public Use
  Company Number: US-PFIZER INC-2006085357

PATIENT
  Sex: Female
  Weight: 66 kg

DRUGS (14)
  1. PROVERA [Suspect]
     Indication: HORMONE REPLACEMENT THERAPY
     Dosage: 5 MG, UNK
     Route: 048
     Dates: start: 19860101, end: 20020101
  2. PROVERA [Suspect]
     Indication: MENOPAUSE
  3. MEDROXYPROGESTERONE AND MEDROXYPROGESTERONE ACETATE [Suspect]
     Indication: HORMONE REPLACEMENT THERAPY
     Dosage: 5 MG, UNK
     Route: 048
     Dates: start: 19860101, end: 20020101
  4. MEDROXYPROGESTERONE AND MEDROXYPROGESTERONE ACETATE [Suspect]
     Indication: MENOPAUSE
  5. PREMARIN [Suspect]
     Indication: HORMONE REPLACEMENT THERAPY
     Dosage: UNK
     Route: 065
     Dates: start: 19860101, end: 19930101
  6. PREMARIN [Suspect]
     Indication: MENOPAUSE
  7. MENEST [Suspect]
     Indication: HORMONE REPLACEMENT THERAPY
     Dosage: 0.625 MG, UNK
     Route: 065
     Dates: start: 19940101, end: 19950101
  8. MENEST [Suspect]
     Indication: MENOPAUSE
  9. CLIMARA [Suspect]
     Indication: HORMONE REPLACEMENT THERAPY
     Dosage: 0.05 MG, UNK
     Route: 065
     Dates: start: 19960101, end: 20020101
  10. CLIMARA [Suspect]
     Indication: MENOPAUSE
  11. MEDROXYPROGESTERONE ACETATE [Suspect]
     Dosage: 5 MG, UNK
     Dates: start: 19860101, end: 20020101
  12. COMBIPATCH [Suspect]
     Indication: MENOPAUSE
     Dosage: UNK
     Dates: start: 19990101
  13. LOPRESSOR [Concomitant]
     Indication: HEART RATE IRREGULAR
     Dosage: UNK
     Dates: start: 20040101
  14. XANAX [Concomitant]
     Dosage: UNK
     Dates: start: 20040101

REACTIONS (1)
  - BREAST CANCER FEMALE [None]
